FAERS Safety Report 18521298 (Version 3)
Quarter: 2021Q2

REPORT INFORMATION
  Report Type: Other
  Country: JP (occurrence: JP)
  Receive Date: 20201119
  Receipt Date: 20210628
  Transmission Date: 20210717
  Serious: Yes (Death, Other)
  Sender: FDA-Public Use
  Company Number: JP-ROCHE-2704142

PATIENT
  Age: 52 Year
  Sex: Male
  Weight: 50 kg

DRUGS (1)
  1. ENTRECTINIB [Suspect]
     Active Substance: ENTRECTINIB
     Indication: NON-SMALL CELL LUNG CANCER
     Route: 048
     Dates: start: 20201013, end: 20201017

REACTIONS (3)
  - Sepsis [Fatal]
  - Metastases to skin [Unknown]
  - Soliloquy [Recovering/Resolving]

NARRATIVE: CASE EVENT DATE: 20201017
